FAERS Safety Report 4287935-8 (Version None)
Quarter: 2004Q1

REPORT INFORMATION
  Report Type: 
  Country: None (occurrence: None)
  Receive Date: 20040205
  Receipt Date: 20040120
  Transmission Date: 20041129
  Serious: Yes (Other)
  Sender: FDA-Public Use
  Company Number: USA040157026

PATIENT
  Sex: 0

DRUGS (2)
  1. GEMZAR [Suspect]
  2. NAVELBINE [Concomitant]

REACTIONS (4)
  - EXTREMITY NECROSIS [None]
  - HAEMOLYTIC URAEMIC SYNDROME [None]
  - RENAL FAILURE [None]
  - THROMBOTIC MICROANGIOPATHY [None]
